FAERS Safety Report 5029925-3 (Version None)
Quarter: 2006Q2

REPORT INFORMATION
  Report Type: 
  Country: None (occurrence: None)
  Receive Date: 20060620
  Receipt Date: 20050930
  Transmission Date: 20061013
  Serious: Yes (Hospitalization)
  Sender: FDA-Public Use
  Company Number: JP-JPN-A20052329

PATIENT
  Age: 67 Year
  Sex: Female

DRUGS (12)
  1. VALTREX [Suspect]
     Indication: HERPES ZOSTER
     Dosage: 1000MG THREE TIMES PER DAY
     Route: 048
     Dates: start: 20050912, end: 20050921
  2. BEZATATE [Suspect]
     Dosage: 1U TWICE PER DAY
     Route: 048
  3. RANITIDINE [Concomitant]
     Dosage: 1TAB TWICE PER DAY
     Route: 048
  4. ALFAROL [Concomitant]
     Dosage: 1CAP PER DAY
     Route: 048
  5. BUFFERIN [Concomitant]
     Dosage: 81MG PER DAY
     Route: 048
  6. NITOROL R [Concomitant]
     Dosage: 1CAP TWICE PER DAY
     Route: 048
  7. THYRADIN [Concomitant]
     Route: 048
  8. SLOW-K [Concomitant]
     Route: 048
  9. CORTRIL [Concomitant]
     Route: 065
  10. HERBESSER [Concomitant]
     Route: 065
  11. NU-LOTAN [Concomitant]
     Route: 048
  12. NIPOLAZIN [Concomitant]
     Route: 048

REACTIONS (5)
  - ASPARTATE AMINOTRANSFERASE INCREASED [None]
  - BLOOD CREATINE PHOSPHOKINASE INCREASED [None]
  - BLOOD LACTATE DEHYDROGENASE INCREASED [None]
  - MYALGIA [None]
  - RHABDOMYOLYSIS [None]
